FAERS Safety Report 15207223 (Version 2)
Quarter: 2018Q3

REPORT INFORMATION
  Report Type: Report from Study
  Country: MX (occurrence: MX)
  Receive Date: 20180727
  Receipt Date: 20180802
  Transmission Date: 20181010
  Serious: Yes (Hospitalization)
  Sender: FDA-Public Use
  Company Number: MX-UCBSA-2018031737

PATIENT
  Age: 7 Year
  Sex: Male
  Weight: 29 kg

DRUGS (5)
  1. METHOTREXATE. [Concomitant]
     Active Substance: METHOTREXATE
     Indication: JUVENILE IDIOPATHIC ARTHRITIS
     Dosage: 10 MG, ONCE DAILY (QD)
     Route: 058
     Dates: start: 20150210
  2. FOLIC ACID. [Concomitant]
     Active Substance: FOLIC ACID
     Indication: JUVENILE IDIOPATHIC ARTHRITIS
     Dosage: 5 MG, EV 3 DAYS
     Dates: start: 20110921
  3. NAPROXEN. [Concomitant]
     Active Substance: NAPROXEN
     Indication: JUVENILE IDIOPATHIC ARTHRITIS
     Dosage: 180 MG, AS NEEDED (PRN)
     Route: 048
     Dates: start: 20111122
  4. CERTOLIZUMAB PEGOL JIA [Suspect]
     Active Substance: CERTOLIZUMAB PEGOL
     Indication: JUVENILE IDIOPATHIC ARTHRITIS
     Dosage: 50 MG, EV 2 WEEKS(QOW)
     Route: 058
     Dates: start: 20150507, end: 20180710
  5. CALCIUM W/VITAMIN D [Concomitant]
     Active Substance: CALCIUM\VITAMIN D
     Indication: PROPHYLAXIS
     Dosage: 600 IU, ONCE DAILY (QD)
     Route: 048
     Dates: start: 20110822

REACTIONS (1)
  - Varicella zoster virus infection [Recovering/Resolving]

NARRATIVE: CASE EVENT DATE: 20180706
